FAERS Safety Report 8760136 (Version 2)
Quarter: 2017Q2

REPORT INFORMATION
  Report Type: Report from Study
  Country: US (occurrence: US)
  Receive Date: 20120829
  Receipt Date: 20170613
  Transmission Date: 20170830
  Serious: Yes (Hospitalization)
  Sender: FDA-Public Use
  Company Number: US-ROCHE-1102786

PATIENT
  Age: 61 Year
  Sex: Female
  Weight: 52.21 kg

DRUGS (2)
  1. BEVACIZUMAB [Suspect]
     Active Substance: BEVACIZUMAB
     Indication: GENITAL NEOPLASM MALIGNANT FEMALE
     Route: 042
     Dates: start: 20120312
  2. EVEROLIMUS [Suspect]
     Active Substance: EVEROLIMUS
     Indication: GENITAL NEOPLASM MALIGNANT FEMALE
     Route: 065
     Dates: start: 20120312

REACTIONS (3)
  - Peripheral swelling [Unknown]
  - Pain [Unknown]
  - Thrombosis [Unknown]

NARRATIVE: CASE EVENT DATE: 20120816
